FAERS Safety Report 6669891-8 (Version None)
Quarter: 2010Q2

REPORT INFORMATION
  Report Type: 
  Country: None (occurrence: None)
  Receive Date: 20100406
  Receipt Date: 20100202
  Transmission Date: 20101027
  Serious: No
  Sender: FDA-Public Use
  Company Number: US-ALLERGAN-1000234US

PATIENT
  Age: 46 Year
  Sex: Female

DRUGS (2)
  1. LATISSE [Suspect]
     Indication: DRUG USE FOR UNKNOWN INDICATION
     Dosage: UNK
     Dates: start: 20090101
  2. LATISSE [Suspect]
     Dosage: 2X/WEEK

REACTIONS (1)
  - MEIBOMIANITIS [None]
